FAERS Safety Report 14246492 (Version 1)
Quarter: 2017Q4

REPORT INFORMATION
  Report Type: Spontaneous
  Country: US (occurrence: None)
  Receive Date: 20171201
  Receipt Date: 20171201
  Transmission Date: 20180321
  Serious: No
  Sender: FDA-Public Use
  Company Number: None

PATIENT
  Age: 64 Year
  Sex: Female

DRUGS (1)
  1. PROLIA [Suspect]
     Active Substance: DENOSUMAB
     Dosage: 60MG Q6MO SQ
     Route: 058
     Dates: start: 20160902, end: 20171111

REACTIONS (2)
  - Musculoskeletal pain [None]
  - Bone pain [None]

NARRATIVE: CASE EVENT DATE: 20171123
